FAERS Safety Report 24729085 (Version 2)
Quarter: 2025Q3

REPORT INFORMATION
  Report Type: Spontaneous
  Country: EU (occurrence: EU)
  Receive Date: 20241213
  Receipt Date: 20250803
  Transmission Date: 20251021
  Serious: Yes (Hospitalization, Other)
  Sender: ALEXION PHARMACEUTICALS
  Company Number: EU-ASTRAZENECA-202412GLO006792FR

PATIENT
  Age: 72 Year
  Sex: Male

DRUGS (10)
  1. OMEPRAZOLE [Suspect]
     Active Substance: OMEPRAZOLE
     Indication: Prophylaxis against gastrointestinal ulcer
  2. AGOMELATINE [Concomitant]
     Active Substance: AGOMELATINE
  3. ATENOLOL [Concomitant]
     Active Substance: ATENOLOL
  4. ARCOXIA [Concomitant]
     Active Substance: ETORICOXIB
  5. ACETAMINOPHEN [Concomitant]
     Active Substance: ACETAMINOPHEN
  6. CODEINE [Concomitant]
     Active Substance: CODEINE
  7. RISPERIDONE [Concomitant]
     Active Substance: RISPERIDONE
  8. SIMVASTATIN [Concomitant]
     Active Substance: SIMVASTATIN
  9. THIAMINE [Concomitant]
     Active Substance: THIAMINE
  10. AMOXICILLIN\CLAVULANIC ACID [Concomitant]
     Active Substance: AMOXICILLIN\CLAVULANIC ACID

REACTIONS (8)
  - Hypocalcaemia [Recovering/Resolving]
  - Hypomagnesaemia [Recovering/Resolving]
  - Hypokalaemia [Unknown]
  - Generalised tonic-clonic seizure [Unknown]
  - Generalised tonic-clonic seizure [Unknown]
  - Hypoxia [Unknown]
  - Loss of consciousness [Unknown]
  - Acute kidney injury [Unknown]

NARRATIVE: CASE EVENT DATE: 20241005
